FAERS Safety Report 18175974 (Version 1)
Quarter: 2020Q3

REPORT INFORMATION
  Report Type: Spontaneous
  Country: US (occurrence: US)
  Receive Date: 20200820
  Receipt Date: 20200820
  Transmission Date: 20201103
  Serious: Yes (Death, Other)
  Sender: FDA-Public Use
  Company Number: US-AMGEN-USASP2020130255

PATIENT
  Age: 60 Year
  Sex: Male

DRUGS (9)
  1. XGEVA [Suspect]
     Active Substance: DENOSUMAB
     Indication: METASTASES TO BONE
     Dosage: UNK
     Route: 058
  2. CINACALCET HCL [Suspect]
     Active Substance: CINACALCET HYDROCHLORIDE
     Dosage: 90 MILLIGRAM, BID
     Route: 048
  3. TESTOSTERONE. [Concomitant]
     Active Substance: TESTOSTERONE
  4. METOPROLOL. [Concomitant]
     Active Substance: METOPROLOL
  5. PAZOPANIB [Concomitant]
     Active Substance: PAZOPANIB
  6. HYDROCORTISONE. [Concomitant]
     Active Substance: HYDROCORTISONE
     Dosage: 20 MILLIGRAM
  7. CINACALCET HCL [Suspect]
     Active Substance: CINACALCET HYDROCHLORIDE
     Indication: HYPERCALCAEMIA OF MALIGNANCY
     Dosage: 30 MILLIGRAM, BID
     Route: 048
  8. HYDROCORTISONE. [Concomitant]
     Active Substance: HYDROCORTISONE
     Dosage: 60 MILLIGRAM, QD
  9. LISINOPRIL. [Concomitant]
     Active Substance: LISINOPRIL

REACTIONS (4)
  - Hypercalcaemia of malignancy [Recovering/Resolving]
  - Off label use [Unknown]
  - Vitamin D increased [Unknown]
  - Disease progression [Fatal]
